FAERS Safety Report 6407214-X (Version None)
Quarter: 2009Q4

REPORT INFORMATION
  Report Type: 
  Country: None (occurrence: None)
  Receive Date: 20091020
  Receipt Date: 20090917
  Transmission Date: 20100525
  Serious: No
  Sender: FDA-Public Use
  Company Number: US-BAYER-200933927NA

PATIENT
  Sex: Female

DRUGS (2)
  1. MIRENA [Suspect]
     Indication: CONTRACEPTION
     Dosage: CONTINUOUS DELIVERY
     Route: 015
  2. AMOXICILLIN [Concomitant]
     Indication: OSTEITIS

REACTIONS (2)
  - OSTEITIS [None]
  - TEMPOROMANDIBULAR JOINT SURGERY [None]
